FAERS Safety Report 13749501 (Version 1)
Quarter: 2017Q3

REPORT INFORMATION
  Report Type: Spontaneous
  Country: US (occurrence: US)
  Receive Date: 20170713
  Receipt Date: 20170713
  Transmission Date: 20171127
  Serious: No
  Sender: FDA-Public Use
  Company Number: None

PATIENT
  Age: 63 Year
  Sex: Male

DRUGS (2)
  1. INLYTA [Suspect]
     Active Substance: AXITINIB
     Indication: RENAL CANCER
     Route: 048
     Dates: start: 20170623, end: 20170711
  2. INLYTA [Suspect]
     Active Substance: AXITINIB
     Indication: METASTASES TO BONE
     Route: 048
     Dates: start: 20170623, end: 20170711

REACTIONS (4)
  - Stomatitis [None]
  - Amnesia [None]
  - Mental disorder [None]
  - Mood altered [None]

NARRATIVE: CASE EVENT DATE: 20170623
